FAERS Safety Report 6831335-0 (Version None)
Quarter: 2010Q3

REPORT INFORMATION
  Report Type: 
  Country: None (occurrence: None)
  Receive Date: 20100707
  Receipt Date: 20100624
  Transmission Date: 20110219
  Serious: Yes (Hospitalization, Other)
  Sender: FDA-Public Use
  Company Number: 7008235

PATIENT
  Age: 49 Year
  Sex: Female
  Weight: 95 kg

DRUGS (5)
  1. REBIF [Suspect]
     Indication: MULTIPLE SCLEROSIS
     Dosage: 44 MCG, 3IN 1 WK, SUBCUTANEOUS
     Route: 058
     Dates: start: 20020101, end: 20100601
  2. TIZANIDINE HCL [Concomitant]
  3. BACLOFEN [Concomitant]
  4. GABAPENTIN (GABAPENRIN) [Concomitant]
  5. ARIMIDEX [Concomitant]

REACTIONS (7)
  - INJECTION SITE ERYTHEMA [None]
  - INJECTION SITE INFECTION [None]
  - INJECTION SITE MASS [None]
  - INJECTION SITE ULCER [None]
  - STAPHYLOCOCCAL INFECTION [None]
  - SUPERINFECTION BACTERIAL [None]
  - TYPE 2 DIABETES MELLITUS [None]
